FAERS Safety Report 12611517 (Version 1)
Quarter: 2016Q3

REPORT INFORMATION
  Report Type: Spontaneous
  Country: CH (occurrence: FR)
  Receive Date: 20160801
  Receipt Date: 20160801
  Transmission Date: 20161109
  Serious: Yes (Other)
  Sender: FDA-Public Use
  Company Number: CH-LPDUSPRD-20160660

PATIENT
  Age: 26 Year
  Sex: Female

DRUGS (1)
  1. FERINJECT [Suspect]
     Active Substance: FERRIC CARBOXYMALTOSE
     Dosage: 1000 MG IN 50 ML OF NACL
     Route: 041
     Dates: start: 20160705, end: 20160705

REACTIONS (6)
  - Product preparation error [Unknown]
  - Off label use [Unknown]
  - Exposure during pregnancy [Unknown]
  - Rash pruritic [Unknown]
  - Somnolence [Unknown]
  - Hypotension [Unknown]

NARRATIVE: CASE EVENT DATE: 20160705
